FAERS Safety Report 14147118 (Version 1)
Quarter: 2017Q4

REPORT INFORMATION
  Report Type: Spontaneous
  Country: US (occurrence: US)
  Receive Date: 20171031
  Receipt Date: 20171031
  Transmission Date: 20180321
  Serious: No
  Sender: FDA-Public Use
  Company Number: US-ROCHE-1997946

PATIENT
  Sex: Male

DRUGS (12)
  1. AMIODARONE [Concomitant]
     Active Substance: AMIODARONE
  2. OXYBUTYNIN CHLORIDE. [Concomitant]
     Active Substance: OXYBUTYNIN CHLORIDE
  3. ESBRIET [Suspect]
     Active Substance: PIRFENIDONE
     Dosage: DOSE REDUCED
     Route: 048
  4. ELIQUIS [Concomitant]
     Active Substance: APIXABAN
  5. NITROSTAT [Concomitant]
     Active Substance: NITROGLYCERIN
  6. ROSUVASTATIN CALCIUM. [Concomitant]
     Active Substance: ROSUVASTATIN CALCIUM
  7. ACETAMINOPHEN. [Concomitant]
     Active Substance: ACETAMINOPHEN
  8. ASPIRIN. [Concomitant]
     Active Substance: ASPIRIN
  9. LORAZEPAM. [Concomitant]
     Active Substance: LORAZEPAM
  10. LEVOTHYROXINE SODIUM. [Concomitant]
     Active Substance: LEVOTHYROXINE SODIUM
  11. METOPROLOL TARTRATE. [Concomitant]
     Active Substance: METOPROLOL TARTRATE
  12. ESBRIET [Suspect]
     Active Substance: PIRFENIDONE
     Indication: IDIOPATHIC PULMONARY FIBROSIS
     Route: 048
     Dates: start: 20170719

REACTIONS (1)
  - Dizziness [Unknown]
